FAERS Safety Report 8837664 (Version 1)
Quarter: 2012Q4

REPORT INFORMATION
  Report Type: Report from Study
  Country: FR (occurrence: FR)
  Receive Date: 20121012
  Receipt Date: 20121012
  Transmission Date: 20130627
  Serious: Yes (Hospitalization, Other)
  Sender: FDA-Public Use
  Company Number: FR-ROCHE-1139165

PATIENT
  Age: 81 Year
  Sex: Female
  Weight: 62.7 kg

DRUGS (13)
  1. ROACTEMRA [Suspect]
     Indication: RHEUMATOID ARTHRITIS
     Route: 065
     Dates: start: 20100708
  2. ROACTEMRA [Suspect]
     Route: 065
     Dates: start: 20101006, end: 20101006
  3. ROACTEMRA [Suspect]
     Route: 065
     Dates: start: 20101112, end: 20101112
  4. ROACTEMRA [Suspect]
     Route: 065
     Dates: start: 20101209
  5. METHOTREXATE [Concomitant]
     Route: 065
  6. BISOPROLOL [Concomitant]
     Route: 065
  7. SPECIAFOLDINE [Concomitant]
     Route: 065
  8. PARACETAMOL [Concomitant]
     Route: 065
  9. PILOCARPINE [Concomitant]
  10. OROCAL [Concomitant]
  11. CORTANCYL [Concomitant]
     Route: 065
  12. UVEDOSE [Concomitant]
     Dosage: 1 ampoule
     Route: 065
  13. ACUPAN [Concomitant]

REACTIONS (6)
  - Urinary tract infection [Recovered/Resolved]
  - Rash [Recovered/Resolved]
  - Skin infection [Recovered/Resolved]
  - Cystitis [Not Recovered/Not Resolved]
  - Influenza [Not Recovered/Not Resolved]
  - Bronchopneumopathy [Not Recovered/Not Resolved]
